FAERS Safety Report 5688338-1 (Version None)
Quarter: 2008Q1

REPORT INFORMATION
  Report Type: 
  Country: None (occurrence: None)
  Receive Date: 20080328
  Receipt Date: 20080328
  Transmission Date: 20080703
  Serious: Yes (Other)
  Sender: FDA-Public Use
  Company Number: None

PATIENT
  Age: 64 Year
  Sex: Male

DRUGS (1)
  1. FENTANYL TRANSDERMAL SYSTEM [Suspect]
     Indication: PAIN
     Dosage: APPLY 1 PATCH EVERY 3 DAYS
     Route: 062

REACTIONS (2)
  - INCORRECT DRUG ADMINISTRATION DURATION [None]
  - PHARMACEUTICAL PRODUCT COMPLAINT [None]
